FAERS Safety Report 5897120-1 (Version None)
Quarter: 2008Q3

REPORT INFORMATION
  Report Type: 
  Country: None (occurrence: None)
  Receive Date: 20080924
  Receipt Date: 20080527
  Transmission Date: 20090109
  Serious: Yes (Disabling)
  Sender: FDA-Public Use
  Company Number: US-ASTRAZENECA-2008UW10835

PATIENT
  Age: 32 Year
  Sex: Female

DRUGS (3)
  1. SEROQUEL [Suspect]
     Route: 048
  2. PERCOCET [Concomitant]
  3. XANAX [Concomitant]

REACTIONS (1)
  - HALLUCINATION [None]
